FAERS Safety Report 25241929 (Version 2)
Quarter: 2025Q2

REPORT INFORMATION
  Report Type: Spontaneous
  Country: GB (occurrence: GB)
  Receive Date: 20250426
  Receipt Date: 20250509
  Transmission Date: 20250716
  Serious: Yes (Hospitalization, Other)
  Sender: AUROBINDO
  Company Number: GB-MHRA-MED-202504110936215460-BLHTJ

PATIENT
  Age: 17 Year
  Sex: Male

DRUGS (5)
  1. OLANZAPINE [Suspect]
     Active Substance: OLANZAPINE
     Indication: Psychotic disorder
     Dosage: 20 MILLIGRAM, ONCE A DAY
     Route: 065
     Dates: start: 20250325, end: 20250407
  2. OLANZAPINE [Suspect]
     Active Substance: OLANZAPINE
     Route: 065
     Dates: start: 20250325
  3. OLANZAPINE [Suspect]
     Active Substance: OLANZAPINE
     Route: 065
     Dates: start: 20250326
  4. OLANZAPINE [Suspect]
     Active Substance: OLANZAPINE
     Route: 065
     Dates: start: 20250328, end: 20250407
  5. PROMETHAZINE [Concomitant]
     Active Substance: PROMETHAZINE HYDROCHLORIDE
     Indication: Agitation
     Route: 065
     Dates: start: 20250326, end: 20250410

REACTIONS (1)
  - Hepatic enzyme increased [Unknown]

NARRATIVE: CASE EVENT DATE: 20250401
